FAERS Safety Report 9265964 (Version 1)
Quarter: 2013Q2

REPORT INFORMATION
  Report Type: Report from Study
  Country: CA (occurrence: CA)
  Receive Date: 20130501
  Receipt Date: 20130501
  Transmission Date: 20140414
  Serious: Yes (Other)
  Sender: FDA-Public Use
  Company Number: CA-JNJFOC-20130417941

PATIENT
  Age: 59 Year
  Sex: Male
  Weight: 89.81 kg

DRUGS (2)
  1. STELARA [Suspect]
     Indication: PSORIASIS
     Route: 058
  2. HYDROMORPH CONTIN [Concomitant]
     Indication: BACK PAIN

REACTIONS (1)
  - Pneumonia [Unknown]
